FAERS Safety Report 9566014 (Version 1)
Quarter: 2013Q3

REPORT INFORMATION
  Report Type: Spontaneous
  Country: BR (occurrence: BR)
  Receive Date: 20130930
  Receipt Date: 20130930
  Transmission Date: 20140515
  Serious: Yes (Death, Life-Threatening, Hospitalization, Disabling)
  Sender: FDA-Public Use
  Company Number: BR-B.I. PHARMACEUTICALS,INC./RIDGEFIELD-2013-BR-01084BR

PATIENT
  Age: 89 Year
  Sex: Male
  Weight: 70 kg

DRUGS (5)
  1. MICARDIS [Suspect]
     Indication: HYPERTENSION
     Dosage: 40 MG
     Route: 048
     Dates: start: 2003, end: 20130917
  2. DIGOXINA [Concomitant]
     Indication: CARDIOMEGALY
     Dates: start: 2003, end: 2013
  3. FUROSEMIDA [Concomitant]
     Indication: CARDIOMEGALY
     Dates: start: 2003, end: 2013
  4. DIVELOL [Concomitant]
     Indication: CARDIOMEGALY
     Dates: start: 2003, end: 2013
  5. ALDACTONE [Concomitant]
     Indication: CARDIOMEGALY
     Dates: start: 2003, end: 2013

REACTIONS (1)
  - Cardiac failure [Fatal]
